FAERS Safety Report 7327415-6 (Version None)
Quarter: 2011Q1

REPORT INFORMATION
  Report Type: 
  Country: None (occurrence: None)
  Receive Date: 20110303
  Receipt Date: 20110223
  Transmission Date: 20110831
  Serious: Yes (Hospitalization, Other)
  Sender: FDA-Public Use
  Company Number: US-ASTRAZENECA-2007UW02452

PATIENT
  Age: 51 Year
  Sex: Female
  Weight: 87.1 kg

DRUGS (23)
  1. RISPERDAL [Concomitant]
     Dosage: 2 MG- 3 MG
     Dates: start: 20040501, end: 20040601
  2. ALPRAZOLAM [Concomitant]
     Dates: start: 20070101, end: 20080101
  3. SEROQUEL [Suspect]
     Dosage: 25-500 MG
     Route: 048
     Dates: start: 20020326
  4. SEROQUEL [Suspect]
     Dosage: 25-500 MG
     Route: 048
     Dates: start: 20020326
  5. GEODON [Concomitant]
     Dates: start: 20070301, end: 20080101
  6. ZOLOFT [Concomitant]
     Dates: start: 20070201, end: 20070501
  7. COUMADIN [Concomitant]
     Dosage: 1-7.5 MG
     Dates: start: 20020215
  8. ZYPREXA [Concomitant]
     Dates: start: 20020301
  9. DEPAKOTE [Concomitant]
     Dates: start: 20050218
  10. DIAZEPAM [Concomitant]
     Dates: start: 20070101
  11. SEROQUEL [Suspect]
     Indication: MAJOR DEPRESSION
     Dosage: 50 MG- 900 MG
     Route: 048
     Dates: start: 20020301, end: 20070326
  12. SEROQUEL [Suspect]
     Dosage: 200 MG TO 300 MG EVERY NIGHT
     Route: 048
     Dates: start: 20050218
  13. K-DUR [Concomitant]
     Dates: start: 20050218
  14. SEROQUEL [Suspect]
     Indication: SCHIZOAFFECTIVE DISORDER
     Dosage: 50 MG- 900 MG
     Route: 048
     Dates: start: 20020301, end: 20070326
  15. LASIX [Concomitant]
     Dates: start: 20050218
  16. GEODON [Concomitant]
     Dates: start: 20040401, end: 20040901
  17. LORAZEPAM [Concomitant]
  18. SEROQUEL [Suspect]
     Dosage: 200 MG TO 300 MG EVERY NIGHT
     Route: 048
     Dates: start: 20050218
  19. ABILIFY [Concomitant]
     Dosage: 10 MG TO 30 MG
     Dates: start: 20060301, end: 20060701
  20. ALPRAZOLAM [Concomitant]
     Dates: start: 20050218
  21. RISPERDAL [Concomitant]
     Dates: start: 20060801, end: 20060901
  22. DEPAKOTE [Concomitant]
     Dates: start: 20050201
  23. HYDROCODONE BITARTRATE [Concomitant]
     Indication: PAIN
     Route: 048
     Dates: start: 20011121

REACTIONS (28)
  - PANCREATITIS [None]
  - CARDIAC DISORDER [None]
  - CARDIAC VALVE DISEASE [None]
  - MEDICAL DEVICE COMPLICATION [None]
  - GASTROENTERITIS SALMONELLA [None]
  - CEREBROVASCULAR ACCIDENT [None]
  - LUNG DISORDER [None]
  - CARDIAC FAILURE CONGESTIVE [None]
  - COAGULOPATHY [None]
  - GAIT DISTURBANCE [None]
  - PARKINSON'S DISEASE [None]
  - THROMBOCYTOPENIA [None]
  - EXTRAPYRAMIDAL DISORDER [None]
  - RESTLESS LEGS SYNDROME [None]
  - CARDIOMYOPATHY [None]
  - HYPERTENSION [None]
  - ATRIAL FIBRILLATION [None]
  - TARDIVE DYSKINESIA [None]
  - MUSCULAR WEAKNESS [None]
  - TYPE 2 DIABETES MELLITUS [None]
  - CHEST PAIN [None]
  - DIABETIC CARDIOMYOPATHY [None]
  - ATRIAL FLUTTER [None]
  - DIABETES MELLITUS [None]
  - LEUKOCYTOSIS [None]
  - FOOD POISONING [None]
  - CONGESTIVE CARDIOMYOPATHY [None]
  - BALANCE DISORDER [None]
